FAERS Safety Report 10154356 (Version 1)
Quarter: 2014Q2

REPORT INFORMATION
  Report Type: Spontaneous
  Country: US (occurrence: US)
  Receive Date: 20140506
  Receipt Date: 20140506
  Transmission Date: 20141212
  Serious: No
  Sender: FDA-Public Use
  Company Number: US-PFIZER INC-2014121510

PATIENT
  Age: 82 Year
  Sex: Female
  Weight: 57.6 kg

DRUGS (8)
  1. LYRICA [Suspect]
     Indication: NEURALGIA
     Dosage: 50 MG, 2X/DAY
     Dates: start: 2014
  2. LYRICA [Suspect]
     Dosage: 75 MG, 2X/DAY
     Dates: start: 2014
  3. LYRICA [Suspect]
     Dosage: 75 MG, DAILY
     Dates: start: 2014
  4. LEVOTHYROXINE [Concomitant]
     Indication: THYROID DISORDER
     Dosage: 50 UG, DAILY
  5. ALLOPURINOL [Concomitant]
     Indication: GOUT
     Dosage: 100 MG, DAILY
  6. SPIRONOLACTONE W/HYDROCHLOROTHIAZIDE [Concomitant]
     Indication: CARDIAC DISORDER
     Dosage: SPIRONOLACTONE 25 MG / HYDROCHLOROTHIAZIDE 25 MG, DAILY
  7. SPIRONOLACTONE W/HYDROCHLOROTHIAZIDE [Concomitant]
     Indication: DIURETIC THERAPY
  8. GLYBURIDE [Concomitant]
     Indication: GLUCOSE TOLERANCE IMPAIRED
     Dosage: 2.5 MG, DAILY

REACTIONS (1)
  - Myalgia [Not Recovered/Not Resolved]
